FAERS Safety Report 5636438-4 (Version None)
Quarter: 2008Q1

REPORT INFORMATION
  Report Type: 
  Country: None (occurrence: None)
  Receive Date: 20080225
  Receipt Date: 20080211
  Transmission Date: 20080703
  Serious: Yes (Death, Other)
  Sender: FDA-Public Use
  Company Number: SE-TYCO HEALTHCARE/MALLINCKRODT-T200800168

PATIENT

DRUGS (2)
  1. SODIUM IODIDE I 131 [Suspect]
     Dosage: 3700 MBQ, UNK
     Route: 064
     Dates: start: 20050101, end: 20050101
  2. THYROID HORMONES [Concomitant]
     Dosage: T3 W/DRAWN 4 WKS AND HORMONES 2 WKS PRIOR TO EVENT
     Route: 015

REACTIONS (2)
  - HYPOTHYROIDISM [None]
  - RADIATION EXPOSURE [None]
